FAERS Safety Report 8960531 (Version 1)
Quarter: 2012Q4

REPORT INFORMATION
  Report Type: Spontaneous
  Country: TR (occurrence: None)
  Receive Date: 20121203
  Receipt Date: 20121203
  Transmission Date: 20130627
  Serious: No
  Sender: FDA-Public Use
  Company Number: TR-AGG-11-2012-0518

PATIENT
  Age: 62 Year
  Sex: Female

DRUGS (7)
  1. TIROFIBAN HYDROCHLORIDE [Suspect]
     Indication: ACUTE MYOCARDIAL INFARCTION
     Dosage: 10mg/kg x1, 1 x a day intracoronary
     Route: 022
  2. TIROFIBAN HYDROCHLORIDE [Suspect]
     Dosage: 0.15ug/kg x 1, 1 x a minute
     Route: 042
  3. LETROZOLE [Concomitant]
  4. ASPIRIN [Concomitant]
  5. HEPARIN [Concomitant]
  6. ATORVASTATIN [Concomitant]
  7. CLOPIDOGREL [Concomitant]

REACTIONS (1)
  - No adverse event [None]
